FAERS Safety Report 14610243 (Version 1)
Quarter: 2018Q1

REPORT INFORMATION
  Report Type: Spontaneous
  Country: GB (occurrence: GB)
  Receive Date: 20180307
  Receipt Date: 20180307
  Transmission Date: 20180509
  Serious: Yes (Death)
  Sender: FDA-Public Use
  Company Number: GB-FRESENIUS KABI-FK201802681

PATIENT
  Sex: Male
  Weight: 1.62 kg

DRUGS (2)
  1. LIOTHYRONINE [Suspect]
     Active Substance: LIOTHYRONINE
     Indication: HYPOTHYROIDIC GOITRE
     Route: 012
  2. LEVOTHYROXINE SODIUM FOR INJECTION (MANUFACTURER UNKNOWN) [Suspect]
     Active Substance: LEVOTHYROXINE SODIUM
     Indication: HYPOTHYROIDIC GOITRE
     Route: 012

REACTIONS (3)
  - Foetal death [Fatal]
  - Product use in unapproved indication [Fatal]
  - Intentional product use issue [Fatal]
